FAERS Safety Report 4318378-6 (Version None)
Quarter: 2004Q1

REPORT INFORMATION
  Report Type: 
  Country: None (occurrence: None)
  Receive Date: 20040315
  Receipt Date: 20040304
  Transmission Date: 20041129
  Serious: Yes (Other)
  Sender: FDA-Public Use
  Company Number: ES-JNJFOC-20040301510

PATIENT
  Age: 75 Year
  Sex: Male

DRUGS (4)
  1. REMICADE [Suspect]
     Indication: PSORIATIC ARTHROPATHY
     Dosage: INTRAVENOUS
     Route: 042
  2. METHOTREXATE [Concomitant]
  3. DEFLAZACORT (DEFLAZACORT) [Concomitant]
  4. ACECLOFENAC (ACECLOFENAC) [Concomitant]

REACTIONS (2)
  - BLINDNESS [None]
  - RETINAL VEIN THROMBOSIS [None]
